FAERS Safety Report 26083647 (Version 3)
Quarter: 2025Q4

REPORT INFORMATION
  Report Type: Spontaneous
  Country: AU (occurrence: AU)
  Receive Date: 20251124
  Receipt Date: 20251216
  Transmission Date: 20260117
  Serious: Yes (Other)
  Sender: MYLAN
  Company Number: AU-MYLANLABS-2025M1091050

PATIENT
  Sex: Male
  Weight: 85 kg

DRUGS (4)
  1. CLOZARIL [Suspect]
     Active Substance: CLOZAPINE
     Indication: Schizophrenia
     Dosage: 450 MILLIGRAM, PM (NOCTE, NIGHT)
     Route: 061
     Dates: start: 20050202
  2. CLOZARIL [Suspect]
     Active Substance: CLOZAPINE
     Indication: Schizophrenia
     Dosage: UNK
     Route: 061
  3. OLANZAPINE [Concomitant]
     Active Substance: OLANZAPINE
     Dosage: 5 MILLIGRAM, BID (PRN, TWICE DAILY))
  4. VALPROATE [Concomitant]
     Active Substance: VALPROIC ACID
     Dosage: 150 MILLIGRAM, PM (NOCTE, NIGHT)

REACTIONS (3)
  - Cardiac failure [Unknown]
  - Cardiomyopathy [Unknown]
  - Ejection fraction decreased [Recovering/Resolving]
